FAERS Safety Report 24822993 (Version 1)
Quarter: 2025Q1

REPORT INFORMATION
  Report Type: Spontaneous
  Country: US (occurrence: US)
  Receive Date: 20250109
  Receipt Date: 20250109
  Transmission Date: 20250409
  Serious: No
  Sender: BRISTOL-MYERS SQUIBB COMPANY
  Company Number: US-BRISTOL-MYERS SQUIBB COMPANY-2025-001546

PATIENT
  Age: 95 Year
  Sex: Female
  Weight: 53.5 kg

DRUGS (2)
  1. ELIQUIS [Suspect]
     Active Substance: APIXABAN
     Indication: Pulmonary thrombosis
     Route: 048
     Dates: start: 202501
  2. IBUPROFEN [Concomitant]
     Active Substance: IBUPROFEN
     Indication: Pain

REACTIONS (3)
  - Visual impairment [Unknown]
  - Memory impairment [Unknown]
  - Speech disorder [Unknown]
